FAERS Safety Report 7711609-1 (Version None)
Quarter: 2011Q3

REPORT INFORMATION
  Report Type: 
  Country: None (occurrence: None)
  Receive Date: 20110826
  Receipt Date: 20110601
  Transmission Date: 20111222
  Serious: No
  Sender: FDA-Public Use
  Company Number: US-BRISTOL-MYERS SQUIBB COMPANY-15776677

PATIENT
  Age: 76 Year
  Sex: Male

DRUGS (1)
  1. ONGLYZA [Suspect]
     Indication: TYPE 2 DIABETES MELLITUS
     Route: 048
     Dates: start: 20100901

REACTIONS (2)
  - GASTROINTESTINAL DISORDER [None]
  - BLOOD GLUCOSE INCREASED [None]
